FAERS Safety Report 5204099-4 (Version None)
Quarter: 2007Q1

REPORT INFORMATION
  Report Type: 
  Country: None (occurrence: None)
  Receive Date: 20070110
  Receipt Date: 20051118
  Transmission Date: 20070707
  Serious: No
  Sender: FDA-Public Use
  Company Number: US-BRISTOL-MYERS SQUIBB COMPANY-13187810

PATIENT
  Sex: Male

DRUGS (2)
  1. ABILIFY [Suspect]
     Indication: DEPRESSION
     Route: 048
  2. ZOLOFT [Concomitant]

REACTIONS (3)
  - ANXIETY [None]
  - DISTURBANCE IN ATTENTION [None]
  - IRRITABILITY [None]
